FAERS Safety Report 23042770 (Version 2)
Quarter: 2023Q4

REPORT INFORMATION
  Report Type: Report from Study
  Country: IT (occurrence: IT)
  Receive Date: 20231009
  Receipt Date: 20231011
  Transmission Date: 20240109
  Serious: Yes (Life-Threatening)
  Sender: FDA-Public Use
  Company Number: None

PATIENT
  Age: 74 Year
  Sex: Female
  Weight: 67 kg

DRUGS (4)
  1. RYBREVANT [Suspect]
     Active Substance: AMIVANTAMAB-VMJW
     Indication: Lung adenocarcinoma stage IV
     Dosage: 350 MG
     Route: 042
     Dates: start: 20230706
  2. TRIMETON [Concomitant]
     Active Substance: CHLORPHENIRAMINE MALEATE
     Indication: Chemotherapy side effect prophylaxis
     Dosage: 10 MG IN SF 100 CC A 15^
     Route: 042
     Dates: start: 20230706
  3. ACETAMOL [PARACETAMOL] [Concomitant]
     Indication: Chemotherapy side effect prophylaxis
     Dosage: 1000MG PER VIA ORALE
     Route: 048
     Dates: start: 20230706
  4. METHYLPREDNISOLONE [Concomitant]
     Active Substance: METHYLPREDNISOLONE
     Indication: Chemotherapy side effect prophylaxis
     Dosage: 40 MG IN SF 100 CC A 15^
     Route: 042
     Dates: start: 20230706

REACTIONS (8)
  - Oxygen saturation decreased [Recovered/Resolved]
  - Conjunctivitis [Recovered/Resolved]
  - Hypertension [Recovered/Resolved]
  - Infusion related reaction [Recovered/Resolved]
  - Hyperhidrosis [Recovered/Resolved]
  - Skin burning sensation [Recovered/Resolved]
  - Erythema [Recovered/Resolved]
  - Sinus tachycardia [Recovered/Resolved]

NARRATIVE: CASE EVENT DATE: 20230706
